FAERS Safety Report 13503639 (Version 3)
Quarter: 2017Q3

REPORT INFORMATION
  Report Type: Spontaneous
  Country: FR (occurrence: FR)
  Receive Date: 20170502
  Receipt Date: 20170908
  Transmission Date: 20171127
  Serious: Yes (Hospitalization)
  Sender: FDA-Public Use
  Company Number: FR-PFIZER INC-2017187194

PATIENT
  Age: 15 Year
  Sex: Male

DRUGS (8)
  1. HYDROCORTISONE. [Concomitant]
     Active Substance: HYDROCORTISONE
     Dosage: UNK
  2. SODIUM BICARBONATE. [Concomitant]
     Active Substance: SODIUM BICARBONATE
     Dosage: UNK
     Dates: start: 201105
  3. METHOTREXATE. [Suspect]
     Active Substance: METHOTREXATE
     Dosage: UNK
     Route: 037
     Dates: start: 2011
  4. METHOTREXATE. [Interacting]
     Active Substance: METHOTREXATE
     Dosage: 5 G/M2/24 HOURS
     Route: 040
     Dates: start: 201105, end: 2011
  5. KEPPRA [Interacting]
     Active Substance: LEVETIRACETAM
     Dosage: 15 MG/KG/DAY IN 2 DIVIDED DOSES
     Route: 048
     Dates: start: 201105, end: 201105
  6. FOLINIC ACID [Concomitant]
     Active Substance: LEUCOVORIN
     Dosage: 200 MG/M2/EVERY 6 HOUR
     Dates: start: 201105
  7. BIONOLYTE G5 [Concomitant]
     Active Substance: DEXTROSE\POTASSIUM CHLORIDE\SODIUM CHLORIDE
     Dosage: UNK
  8. CYTARABINE. [Concomitant]
     Active Substance: CYTARABINE
     Dosage: UNK
     Dates: start: 201105

REACTIONS (7)
  - Drug interaction [Recovered/Resolved]
  - Blood creatinine increased [Recovered/Resolved]
  - Renal failure [Recovered/Resolved]
  - Blood pressure increased [Recovered/Resolved]
  - Seizure [Recovered/Resolved]
  - Drug level increased [Recovered/Resolved]
  - Vomiting [Recovered/Resolved]

NARRATIVE: CASE EVENT DATE: 2011
